FAERS Safety Report 6395263-X (Version None)
Quarter: 2009Q4

REPORT INFORMATION
  Report Type: 
  Country: None (occurrence: None)
  Receive Date: 20091009
  Receipt Date: 20090930
  Transmission Date: 20100525
  Serious: Yes (Hospitalization)
  Sender: FDA-Public Use
  Company Number: A0728173A

PATIENT
  Age: 65 Year
  Sex: Female
  Weight: 95.5 kg

DRUGS (9)
  1. AVANDIA [Suspect]
     Dosage: 4MG PER DAY
     Dates: start: 20060201, end: 20070504
  2. AVANDAMET [Suspect]
  3. GLUCOPHAGE [Concomitant]
     Dates: start: 20060101
  4. METFORMIN [Concomitant]
     Dates: start: 20060201
  5. ARTHROTEC [Concomitant]
  6. CELEBREX [Concomitant]
  7. ALTACE [Concomitant]
  8. TOPROL-XL [Concomitant]
  9. GLUCOSAMINE [Concomitant]

REACTIONS (9)
  - ANXIETY [None]
  - CARDIAC DISORDER [None]
  - DRESSLER'S SYNDROME [None]
  - HEART INJURY [None]
  - HYPERLIPIDAEMIA [None]
  - LIFE EXPECTANCY SHORTENED [None]
  - MYOCARDIAL INFARCTION [None]
  - PAIN [None]
  - WEIGHT INCREASED [None]
